FAERS Safety Report 20572000 (Version 1)
Quarter: 2022Q1

REPORT INFORMATION
  Report Type: Spontaneous
  Country: ES (occurrence: ES)
  Receive Date: 20220309
  Receipt Date: 20220309
  Transmission Date: 20220423
  Serious: Yes (Hospitalization, Other)
  Sender: FDA-Public Use
  Company Number: ES-Accord-254693

PATIENT
  Age: 64 Year
  Sex: Female

DRUGS (3)
  1. OXALIPLATIN [Suspect]
     Active Substance: OXALIPLATIN
     Indication: Colorectal adenocarcinoma
     Route: 058
     Dates: start: 2017
  2. FLUOROURACIL [Concomitant]
     Active Substance: FLUOROURACIL
     Indication: Colorectal adenocarcinoma
     Route: 058
     Dates: start: 2017
  3. LEUCOVORIN [Concomitant]
     Active Substance: LEUCOVORIN
     Indication: Colorectal adenocarcinoma
     Route: 058
     Dates: start: 2017

REACTIONS (2)
  - Administration site extravasation [Recovering/Resolving]
  - C-reactive protein increased [Unknown]
